FAERS Safety Report 5807280-6 (Version None)
Quarter: 2008Q3

REPORT INFORMATION
  Report Type: 
  Country: None (occurrence: None)
  Receive Date: 20080709
  Receipt Date: 20080709
  Transmission Date: 20090109
  Serious: Yes (Other)
  Sender: FDA-Public Use
  Company Number: None

PATIENT
  Age: 42 Year
  Sex: Female
  Weight: 68.0396 kg

DRUGS (1)
  1. EVAMIST [Suspect]
     Indication: HOT FLUSH
     Dosage: 1 SPRAY DAILY TRANSDERMAL
     Route: 062
     Dates: start: 20080630, end: 20080705

REACTIONS (1)
  - BREAST PAIN [None]
